FAERS Safety Report 24630852 (Version 4)
Quarter: 2025Q3

REPORT INFORMATION
  Report Type: Spontaneous
  Country: JP (occurrence: JP)
  Receive Date: 20241118
  Receipt Date: 20250803
  Transmission Date: 20251020
  Serious: Yes (Other)
  Sender: ALEXION PHARMACEUTICALS
  Company Number: JP-ASTRAZENECA-240094408_010520_P_1

PATIENT
  Age: 49 Year
  Sex: Female
  Weight: 50 kg

DRUGS (5)
  1. FASLODEX [Suspect]
     Active Substance: FULVESTRANT
     Indication: Breast cancer
     Dosage: DOSE UNKNOWN
     Dates: start: 20230303, end: 20240826
  2. FASLODEX [Suspect]
     Active Substance: FULVESTRANT
  3. TRUQAP [Suspect]
     Active Substance: CAPIVASERTIB
     Indication: Breast cancer
     Dosage: ADMINISTER FOR 4 DAYS IN A ROW FOLLOWED BY A 3-DAY BREAK
     Dates: start: 20240730, end: 20240808
  4. TRUQAP [Suspect]
     Active Substance: CAPIVASERTIB
     Dosage: ADMINISTER FOR 4 DAYS IN A ROW FOLLOWED BY A 3-DAY BREAK
     Dates: start: 20240910, end: 20240910
  5. CALCIUM CARBONATE\CHOLECALCIFEROL\MAGNESIUM CARBONATE [Suspect]
     Active Substance: CALCIUM CARBONATE\CHOLECALCIFEROL\MAGNESIUM CARBONATE
     Indication: Metastases to bone
     Dates: start: 20230217

REACTIONS (7)
  - Rash erythematous [Not Recovered/Not Resolved]
  - Stomatitis [Recovering/Resolving]
  - Oedema [Recovering/Resolving]
  - Oropharyngeal discomfort [Not Recovered/Not Resolved]
  - Pyrexia [Not Recovered/Not Resolved]
  - Hyperaemia [Not Recovered/Not Resolved]
  - Headache [Unknown]

NARRATIVE: CASE EVENT DATE: 20240808
